FAERS Safety Report 8501496-6 (Version None)
Quarter: 2012Q3

REPORT INFORMATION
  Report Type: 
  Country: None (occurrence: None)
  Receive Date: 20120710
  Receipt Date: 20120703
  Transmission Date: 20120928
  Serious: Yes (Other)
  Sender: FDA-Public Use
  Company Number: US-JNJFOC-20120703422

PATIENT
  Sex: Male

DRUGS (5)
  1. ZYRTEC [Suspect]
     Indication: PRODUCT USED FOR UNKNOWN INDICATION
     Route: 048
     Dates: start: 20120702
  2. BENADRYL [Interacting]
     Indication: PRODUCT USED FOR UNKNOWN INDICATION
     Route: 061
     Dates: start: 20120702
  3. ZYRTEC [Suspect]
     Route: 048
  4. CEPHALEXIN MONOHYDRATE [Interacting]
     Indication: ANTIBIOTIC THERAPY
     Route: 065
     Dates: start: 20120702
  5. BENADRYL PILLS (BLUE) [Interacting]
     Indication: PRODUCT USED FOR UNKNOWN INDICATION
     Route: 065
     Dates: start: 20120702

REACTIONS (6)
  - PHARYNGEAL OEDEMA [None]
  - DRUG INTERACTION [None]
  - URTICARIA [None]
  - LOCAL SWELLING [None]
  - PHARYNGITIS [None]
  - INFLAMMATION [None]
